FAERS Safety Report 11132941 (Version 1)
Quarter: 2015Q2

REPORT INFORMATION
  Report Type: Report from Study
  Country: US (occurrence: US)
  Receive Date: 20150522
  Receipt Date: 20150522
  Transmission Date: 20150821
  Serious: Yes (Hospitalization)
  Sender: FDA-Public Use
  Company Number: PHEH2015US009604

PATIENT
  Age: 56 Year
  Sex: Female

DRUGS (1)
  1. EXJADE [Suspect]
     Active Substance: DEFERASIROX
     Indication: PRODUCT USED FOR UNKNOWN INDICATION
     Dosage: 1500 MG, QD
     Route: 048
     Dates: start: 20150429

REACTIONS (3)
  - Chest pain [Unknown]
  - Hypopnoea [Unknown]
  - Back pain [Unknown]

NARRATIVE: CASE EVENT DATE: 20150511
